FAERS Safety Report 9638892 (Version 3)
Quarter: 2013Q4

REPORT INFORMATION
  Report Type: Report from Study
  Country: MX (occurrence: MX)
  Receive Date: 20131022
  Receipt Date: 20131129
  Transmission Date: 20140711
  Serious: Yes (Death, Disabling, Other)
  Sender: FDA-Public Use
  Company Number: PHHY2012MX021004

PATIENT
  Age: 102 Year
  Sex: Female

DRUGS (1)
  1. DIOVAN [Suspect]
     Indication: HYPERTENSION
     Dosage: 1 DF, (80MG) PER DAY
     Route: 048

REACTIONS (3)
  - Hemiplegia [Fatal]
  - Embolism [Fatal]
  - Increased upper airway secretion [Fatal]
